FAERS Safety Report 9288439 (Version 2)
Quarter: 2016Q1

REPORT INFORMATION
  Report Type: Spontaneous
  Country: BR (occurrence: BR)
  Receive Date: 20130514
  Receipt Date: 20160219
  Transmission Date: 20160526
  Serious: Yes (Hospitalization, Other)
  Sender: FDA-Public Use
  Company Number: BR-PFIZER INC-2013146120

PATIENT
  Age: 55 Year
  Sex: Male
  Weight: 101 kg

DRUGS (2)
  1. FRONTAL [Suspect]
     Active Substance: ALPRAZOLAM
     Indication: INSOMNIA
     Dosage: 0.5 MG, 1X/DAY
     Route: 048
     Dates: start: 1996
  2. LYRICA [Suspect]
     Active Substance: PREGABALIN
     Indication: NEUROPATHY PERIPHERAL
     Dosage: 150 MG (^1 TABLETS^ OF 75MG), DAILY
     Dates: start: 2009

REACTIONS (15)
  - Asthenia [Unknown]
  - Gangrene [Unknown]
  - Lung neoplasm malignant [Unknown]
  - Bone marrow failure [Unknown]
  - Infection [Unknown]
  - Pyrexia [Unknown]
  - Pneumonia [Unknown]
  - Speech disorder [Recovered/Resolved]
  - Condition aggravated [Unknown]
  - Apparent death [Unknown]
  - Shock [Unknown]
  - Neuropathy peripheral [Unknown]
  - Metastasis [Unknown]
  - Gait disturbance [Unknown]
  - Sepsis [Unknown]

NARRATIVE: CASE EVENT DATE: 200906
